FAERS Safety Report 8395676 (Version 2)
Quarter: 2013Q4

REPORT INFORMATION
  Report Type: Report from Study
  Country: NO (occurrence: NO)
  Receive Date: 20120208
  Receipt Date: 20131118
  Transmission Date: 20140711
  Serious: Yes (Death, Other)
  Sender: FDA-Public Use
  Company Number: NO-ROCHE-656209

PATIENT
  Sex: 0

DRUGS (6)
  1. ALTEPLASE [Suspect]
     Indication: DEEP VEIN THROMBOSIS
     Route: 042
  2. WARFARIN SODIUM [Suspect]
     Indication: DEEP VEIN THROMBOSIS
     Dosage: DISCONTINUED BEFORE CDT
     Route: 048
  3. WARFARIN SODIUM [Suspect]
     Route: 048
  4. LOW MOLECULAR WEIGHT HEPARIN [Suspect]
     Indication: DEEP VEIN THROMBOSIS
     Dosage: DISCONTINUED BEFORE CDT
     Route: 058
  5. LOW MOLECULAR WEIGHT HEPARIN [Suspect]
     Dosage: INITIATED AFTE I H AFTER REMOVAL OF CATHETER
     Route: 058
  6. HEPARIN SODIUM [Suspect]
     Indication: DEEP VEIN THROMBOSIS
     Route: 040

REACTIONS (7)
  - Neoplasm malignant [Fatal]
  - Compartment syndrome [Unknown]
  - Haematoma [Unknown]
  - Subcutaneous haematoma [Unknown]
  - Haemorrhage [Unknown]
  - Abdominal wall haematoma [Unknown]
  - Osteomyelitis [Unknown]
